FAERS Safety Report 8029275-7 (Version None)
Quarter: 2012Q1

REPORT INFORMATION
  Report Type: 
  Country: None (occurrence: None)
  Receive Date: 20120106
  Receipt Date: 20111229
  Transmission Date: 20120608
  Serious: Yes (Other)
  Sender: FDA-Public Use
  Company Number: US-BAYER-2011-059290

PATIENT
  Sex: Female

DRUGS (2)
  1. ASPIRIN [Suspect]
     Indication: CHEST PAIN
     Dosage: BOTTLE COUNT 24S
     Route: 048
     Dates: start: 20110601
  2. ASPIRIN [Suspect]
     Route: 048

REACTIONS (2)
  - CHEST PAIN [None]
  - DEAFNESS [None]
